FAERS Safety Report 9845136 (Version 1)
Quarter: 2014Q1

REPORT INFORMATION
  Report Type: Spontaneous
  Country: US (occurrence: None)
  Receive Date: 20140123
  Receipt Date: 20140123
  Transmission Date: 20141002
  Serious: Yes (Other)
  Sender: FDA-Public Use
  Company Number: None

PATIENT
  Age: 35 Year
  Sex: Female

DRUGS (1)
  1. MIRVASO [Suspect]
     Indication: ROSACEA
     Route: 061
     Dates: start: 20140117, end: 20140119

REACTIONS (2)
  - Erythema [None]
  - Rebound effect [None]
